FAERS Safety Report 12847850 (Version 1)
Quarter: 2016Q4

REPORT INFORMATION
  Report Type: Spontaneous
  Country: US (occurrence: US)
  Receive Date: 20161014
  Receipt Date: 20161014
  Transmission Date: 20170207
  Serious: No
  Sender: FDA-Public Use
  Company Number: US-FRI-1000086278

PATIENT
  Sex: Male

DRUGS (1)
  1. VRAYLAR [Suspect]
     Active Substance: CARIPRAZINE
     Dosage: 3 MG, UNK

REACTIONS (7)
  - Energy increased [Unknown]
  - Sleep disorder [Unknown]
  - Anxiety [Unknown]
  - Blood pressure increased [Unknown]
  - Therapeutic response unexpected [Unknown]
  - Irritability [Unknown]
  - Mania [Unknown]

NARRATIVE: CASE EVENT DATE: 201606
